FAERS Safety Report 26199821 (Version 1)
Quarter: 2025Q4

REPORT INFORMATION
  Report Type: Spontaneous
  Country: US (occurrence: US)
  Receive Date: 20251225
  Receipt Date: 20251225
  Transmission Date: 20260117
  Serious: No
  Sender: DR REDDYS
  Company Number: None

PATIENT
  Age: 68 Year
  Sex: Male
  Weight: 65.7 kg

DRUGS (8)
  1. CARBIDOPA AND LEVODOPA [Suspect]
     Active Substance: CARBIDOPA\LEVODOPA
     Indication: Parkinson^s disease
     Dosage: CARBIDOPA 25 MG/LEVODOPA 100 MG IR 1 TABLET THREE TIMES DAILY
  2. CARBIDOPA AND LEVODOPA [Suspect]
     Active Substance: CARBIDOPA\LEVODOPA
     Indication: Parkinson^s disease
     Dosage: CARBIDOPA 36.25 MG/LEVODOPA 145 MG ER 3 CAPSULES FIVE TIMES DAILY
  3. HERBALS [Suspect]
     Active Substance: HERBALS
     Indication: Parkinson^s disease
  4. AMLODIPINE [Concomitant]
     Active Substance: AMLODIPINE BESYLATE
     Indication: Product used for unknown indication
  5. SERTRALINE [Concomitant]
     Active Substance: SERTRALINE HYDROCHLORIDE
     Indication: Product used for unknown indication
  6. ACETAMINOPHEN [Concomitant]
     Active Substance: ACETAMINOPHEN
     Indication: Pain
     Dosage: AS NEEDED
  7. SENNOSIDES [Concomitant]
     Active Substance: SENNOSIDES
     Indication: Constipation
  8. ZOLPIDEM [Concomitant]
     Active Substance: ZOLPIDEM TARTRATE
     Indication: Insomnia
     Dosage: AT BEDTIME AS NEEDED

REACTIONS (2)
  - Dopamine dysregulation syndrome [Recovered/Resolved]
  - Intentional product misuse [Recovered/Resolved]
